FAERS Safety Report 11011566 (Version 2)
Quarter: 2015Q2

REPORT INFORMATION
  Report Type: Spontaneous
  Country: BG (occurrence: BG)
  Receive Date: 20150410
  Receipt Date: 20150506
  Transmission Date: 20150821
  Serious: Yes (Hospitalization)
  Sender: FDA-Public Use
  Company Number: BG-ASTRAZENECA-2015SE32469

PATIENT
  Age: 37 Year
  Sex: Male

DRUGS (14)
  1. BRILIQUE [Suspect]
     Active Substance: TICAGRELOR
     Indication: ACUTE MYOCARDIAL INFARCTION
     Route: 048
     Dates: start: 201501
  2. BRILIQUE [Suspect]
     Active Substance: TICAGRELOR
     Indication: ELECTROCARDIOGRAM ST SEGMENT ELEVATION
     Route: 048
     Dates: start: 201501
  3. CRESTOR [Concomitant]
     Active Substance: ROSUVASTATIN CALCIUM
     Route: 048
  4. ISODINIT RETARD [Concomitant]
  5. PRESTARIUM [Concomitant]
     Active Substance: PERINDOPRIL
  6. ASPIRIN PROTECT [Suspect]
     Active Substance: ASPIRIN
     Route: 065
  7. NEBILET [Concomitant]
     Active Substance: NEBIVOLOL
  8. TINTAROS [Concomitant]
  9. ASPIRIN PROTECT [Suspect]
     Active Substance: ASPIRIN
     Route: 065
  10. VIVACE [Concomitant]
  11. NEBIVOLOL [Concomitant]
     Active Substance: NEBIVOLOL
  12. OLICARD [Concomitant]
     Dosage: 1 TABLET AT NOON
  13. ARIXTRA [Concomitant]
     Active Substance: FONDAPARINUX SODIUM
     Route: 058
  14. NITRONAL [Concomitant]
     Active Substance: NITROGLYCERIN

REACTIONS (3)
  - Angina unstable [Recovering/Resolving]
  - Haemorrhagic erosive gastritis [Unknown]
  - Melaena [Recovered/Resolved]
